FAERS Safety Report 9591962 (Version 3)
Quarter: 2013Q4

REPORT INFORMATION
  Report Type: Spontaneous
  Country: SE (occurrence: SE)
  Receive Date: 20131004
  Receipt Date: 20131024
  Transmission Date: 20140711
  Serious: Yes (Hospitalization)
  Sender: FDA-Public Use
  Company Number: SE-ROCHE-1281636

PATIENT
  Age: 59 Year
  Sex: Female

DRUGS (5)
  1. ZELBORAF [Suspect]
     Indication: MALIGNANT MELANOMA
     Dosage: FILM-COATED TABLET 240 MG
     Route: 048
     Dates: start: 20130625
  2. ALLOPURINOL [Concomitant]
  3. PREDNISOLON [Concomitant]
  4. CLAFORAN [Concomitant]
     Route: 065
  5. BACTRIM [Concomitant]
     Route: 065

REACTIONS (2)
  - Urticaria [Recovered/Resolved]
  - Pyrexia [Recovered/Resolved]
